FAERS Safety Report 16090450 (Version 1)
Quarter: 2019Q1

REPORT INFORMATION
  Report Type: Spontaneous
  Country: US (occurrence: US)
  Receive Date: 20190319
  Receipt Date: 20190319
  Transmission Date: 20190418
  Serious: No
  Sender: FDA-Public Use
  Company Number: US-PFIZER INC-2019112999

PATIENT
  Age: 92 Year
  Sex: Female

DRUGS (1)
  1. LATANOPROST. [Suspect]
     Active Substance: LATANOPROST
     Dosage: 1 GTT, 1X/DAY BEHIND AFFECTED EYE IN THE EVENING
     Route: 047

REACTIONS (4)
  - Insomnia [Unknown]
  - Product use complaint [Unknown]
  - Intentional product misuse [Unknown]
  - Product packaging quantity issue [Unknown]
